FAERS Safety Report 5699793-5 (Version None)
Quarter: 2008Q2

REPORT INFORMATION
  Report Type: 
  Country: None (occurrence: None)
  Receive Date: 20080407
  Receipt Date: 20071116
  Transmission Date: 20081010
  Serious: Yes (Other)
  Sender: FDA-Public Use
  Company Number: 2007096721

PATIENT
  Age: 54 Year
  Sex: Female
  Weight: 50 kg

DRUGS (3)
  1. HEPARIN SODIUM [Suspect]
     Dosage: 30000 I.U. 10000 I.U.
     Dates: start: 20070926, end: 20070926
  2. ANGIOMAX [Suspect]
     Dosage: 8.3 ML, INTRAVENOUS 15.3 ML, INTRAVENOUS
     Route: 042
     Dates: start: 20070926, end: 20070926
  3. ANGIOMAX [Suspect]
     Dosage: 8.3 ML, INTRAVENOUS 15.3 ML, INTRAVENOUS
     Route: 042
     Dates: start: 20070926

REACTIONS (4)
  - ACTIVATED PARTIAL THROMBOPLASTIN TIME PROLONGED [None]
  - COAGULATION TIME ABNORMAL [None]
  - INTERNATIONAL NORMALISED RATIO INCREASED [None]
  - PROTHROMBIN TIME PROLONGED [None]
